FAERS Safety Report 8911467 (Version 1)
Quarter: 2012Q4

REPORT INFORMATION
  Report Type: 
  Country: FR (occurrence: FR)
  Receive Date: 20121115
  Receipt Date: 20121115
  Transmission Date: 20130627
  Serious: Yes (Other)
  Sender: FDA-Public Use
  Company Number: FR-ELI_LILLY_AND_COMPANY-FR201211002753

PATIENT
  Age: 31 Year
  Sex: Male

DRUGS (1)
  1. ZYPREXA [Suspect]
     Dosage: 7.5 mg, bid

REACTIONS (6)
  - Liver disorder [Unknown]
  - Arrhythmia [Unknown]
  - Nephropathy [Unknown]
  - Hunger [Unknown]
  - Dry mouth [Unknown]
  - Unevaluable event [Unknown]
